FAERS Safety Report 6191625-4 (Version None)
Quarter: 2009Q2

REPORT INFORMATION
  Report Type: 
  Country: None (occurrence: None)
  Receive Date: 20090515
  Receipt Date: 20090511
  Transmission Date: 20091009
  Serious: Yes (Congenital Anomaly, Other)
  Sender: FDA-Public Use
  Company Number: PHEH2009US03997

PATIENT
  Sex: Male

DRUGS (1)
  1. FEMARA [Suspect]
     Dosage: MATERNAL DOSE: 2.5MG, ONE TABLET DAILY ON CYCLE DAYS 3 TO 7
     Route: 064

REACTIONS (3)
  - CLEFT LIP AND PALATE [None]
  - CLEFT PALATE REPAIR [None]
  - DRUG EXPOSURE BEFORE PREGNANCY [None]
